FAERS Safety Report 4984272-0 (Version None)
Quarter: 2006Q2

REPORT INFORMATION
  Report Type: 
  Country: None (occurrence: None)
  Receive Date: 20060420
  Receipt Date: 20060404
  Transmission Date: 20061013
  Serious: Yes (Hospitalization)
  Sender: FDA-Public Use
  Company Number: 8016151

PATIENT
  Age: 28 Year
  Sex: Female
  Weight: 79 kg

DRUGS (5)
  1. KEPPRA [Suspect]
     Indication: EPILEPSY
     Dosage: 1500 MG /D PO
     Route: 048
     Dates: start: 20050401
  2. INSULIN HUMULIN [Concomitant]
  3. HUMULIN N [Concomitant]
  4. FOLIC ACID [Concomitant]
  5. LAXATIVES [Concomitant]

REACTIONS (3)
  - ABORTION THREATENED [None]
  - DRUG EXPOSURE DURING PREGNANCY [None]
  - PREGNANCY [None]
